FAERS Safety Report 7770055-5 (Version None)
Quarter: 2011Q3

REPORT INFORMATION
  Report Type: 
  Country: None (occurrence: None)
  Receive Date: 20110922
  Receipt Date: 20110524
  Transmission Date: 20111222
  Serious: No
  Sender: FDA-Public Use
  Company Number: US-ASTRAZENECA-2011SE31962

PATIENT
  Age: 60 Year
  Sex: Female

DRUGS (3)
  1. CYMBALTA [Suspect]
  2. SEROQUEL [Suspect]
     Indication: BIPOLAR DISORDER
     Route: 048
  3. SEROQUEL [Suspect]
     Indication: SLEEP DISORDER
     Route: 048

REACTIONS (2)
  - OFF LABEL USE [None]
  - HALLUCINATION [None]
